FAERS Safety Report 9594238 (Version 2)
Quarter: 2013Q4

REPORT INFORMATION
  Report Type: Spontaneous
  Country: US (occurrence: US)
  Receive Date: 20131004
  Receipt Date: 20131004
  Transmission Date: 20140711
  Serious: No
  Sender: FDA-Public Use
  Company Number: US-PURDUE-USA-2012-0090131

PATIENT
  Sex: Female

DRUGS (1)
  1. BUTRANS [Suspect]
     Indication: PAIN
     Dosage: 10 MCG/HR, UNK
     Route: 062
     Dates: start: 20120716, end: 20120720

REACTIONS (8)
  - Hot flush [Not Recovered/Not Resolved]
  - Drug ineffective [Unknown]
  - Pain [Unknown]
  - Somnolence [Unknown]
  - Dysgeusia [Recovering/Resolving]
  - Nausea [Unknown]
  - Headache [Unknown]
  - Abdominal discomfort [Unknown]
